FAERS Safety Report 9399122 (Version 1)
Quarter: 2013Q3

REPORT INFORMATION
  Report Type: Spontaneous
  Country: GR (occurrence: GR)
  Receive Date: 20130715
  Receipt Date: 20130715
  Transmission Date: 20140515
  Serious: Yes (Hospitalization)
  Sender: FDA-Public Use
  Company Number: GR-ROCHE-1246103

PATIENT
  Age: 56 Year
  Sex: Male

DRUGS (1)
  1. XELODA [Suspect]
     Indication: RECTAL CANCER
     Dosage: 5 TABS IN TOTAL/DAILY
     Route: 065
     Dates: start: 20130619, end: 20130621

REACTIONS (11)
  - Erythema [Recovering/Resolving]
  - Oral candidiasis [Recovering/Resolving]
  - Epistaxis [Unknown]
  - Confusional state [Unknown]
  - Blood glucose increased [Unknown]
  - Blood urea increased [Unknown]
  - Blood creatinine increased [Unknown]
  - White blood cell count decreased [Unknown]
  - Platelet count decreased [Unknown]
  - Renal failure [Unknown]
  - Rhabdomyolysis [Unknown]
